FAERS Safety Report 8790593 (Version 1)
Quarter: 2012Q4

REPORT INFORMATION
  Report Type: Spontaneous
  Country: TR (occurrence: None)
  Receive Date: 20120905
  Receipt Date: 20120905
  Transmission Date: 20130627
  Serious: Yes (Other)
  Sender: FDA-Public Use
  Company Number: 2012P1054842

PATIENT
  Age: 37 Year
  Sex: Male

DRUGS (3)
  1. CARBAMAZEPINE [Suspect]
     Indication: OLIGODENDROGLIOMA
  2. LAMOTRIGINE [Concomitant]
  3. CLONAZEPAM [Concomitant]

REACTIONS (10)
  - Convulsion [None]
  - Hydrocephalus [None]
  - Escherichia urinary tract infection [None]
  - Klebsiella infection [None]
  - Urinary tract infection pseudomonal [None]
  - Rash maculo-papular [None]
  - Rash erythematous [None]
  - Thrombocytopenia [None]
  - Hypogammaglobulinaemia [None]
  - Condition aggravated [None]
